FAERS Safety Report 6764832-7 (Version None)
Quarter: 2010Q2

REPORT INFORMATION
  Report Type: 
  Country: None (occurrence: None)
  Receive Date: 20100609
  Receipt Date: 20100514
  Transmission Date: 20101027
  Serious: No
  Sender: FDA-Public Use
  Company Number: 2010011636

PATIENT
  Age: 5 Year
  Sex: Female
  Weight: 17.6903 kg

DRUGS (1)
  1. CHILDREN'S ZYRTEC ALLERGY [Suspect]
     Indication: SEASONAL ALLERGY
     Dosage: 5 ML PER DAY IN THE MORNING, ORAL
     Route: 048
     Dates: start: 20100514

REACTIONS (5)
  - ABDOMINAL PAIN UPPER [None]
  - EYE SWELLING [None]
  - HEADACHE [None]
  - OCULAR HYPERAEMIA [None]
  - PRODUCT QUALITY ISSUE [None]
